FAERS Safety Report 8965695 (Version 1)
Quarter: 2012Q4

REPORT INFORMATION
  Report Type: Spontaneous
  Country: US (occurrence: None)
  Receive Date: 20121212
  Receipt Date: 20121212
  Transmission Date: 20130627
  Serious: Yes (Other)
  Sender: FDA-Public Use
  Company Number: None

PATIENT

DRUGS (1)
  1. BENZOCAINE [Suspect]
     Indication: PERINEAL PAIN

REACTIONS (2)
  - Methaemoglobinaemia [None]
  - Foetal exposure timing unspecified [None]
